FAERS Safety Report 6106767-9 (Version None)
Quarter: 2009Q1

REPORT INFORMATION
  Report Type: 
  Country: None (occurrence: None)
  Receive Date: 20090302
  Receipt Date: 20090218
  Transmission Date: 20090719
  Serious: Yes (Hospitalization)
  Sender: FDA-Public Use
  Company Number: WAES 0901USA02739

PATIENT
  Age: 76 Year
  Sex: Male

DRUGS (2)
  1. FOSAMAX [Suspect]
     Indication: OSTEOPOROSIS
     Dosage: 35 MG/WKY PO
     Route: 048
     Dates: start: 20070427, end: 20070725
  2. DICLOFENAC SODIUM [Suspect]
     Indication: BACK PAIN
     Dosage: 50 MG/DAILY RECT
     Route: 054
     Dates: start: 20070413, end: 20070723

REACTIONS (3)
  - GASTRIC ULCER HAEMORRHAGE [None]
  - MALAISE [None]
  - PAIN [None]
